FAERS Safety Report 14142224 (Version 1)
Quarter: 2017Q4

REPORT INFORMATION
  Report Type: Other
  Country: CA (occurrence: CA)
  Receive Date: 20171030
  Receipt Date: 20171030
  Transmission Date: 20180321
  Serious: Yes (Hospitalization)
  Sender: FDA-Public Use
  Company Number: CA-GENUS_LIFESCIENCES-USA-POI0580201700090

PATIENT
  Age: 70 Year
  Sex: Male

DRUGS (10)
  1. MONTELUKAST [Concomitant]
     Active Substance: MONTELUKAST SODIUM
  2. SALBUTAMOL [Concomitant]
     Active Substance: ALBUTEROL
  3. LEVOLET (LEVOTHYROXINE) [Suspect]
     Active Substance: LEVOTHYROXINE
  4. PREDNISONE. [Concomitant]
     Active Substance: PREDNISONE
  5. FLOWER MAN SANG HUNG [Suspect]
     Active Substance: HERBALS
     Dates: start: 2015, end: 2015
  6. LEUPROLIDE [Concomitant]
     Active Substance: LEUPROLIDE
  7. CICLESONIDE [Concomitant]
     Active Substance: CICLESONIDE
  8. ORTERONEL OR PLACEBO [Suspect]
     Active Substance: ORTERONEL
     Dates: start: 2015, end: 2015
  9. ZOPICLONE [Concomitant]
     Active Substance: ZOPICLONE
  10. CORDYCEPS [Suspect]
     Active Substance: HERBALS
     Dates: start: 2015, end: 2015

REACTIONS (1)
  - Thyrotoxic crisis [Recovered/Resolved]

NARRATIVE: CASE EVENT DATE: 2015
